FAERS Safety Report 25637829 (Version 2)
Quarter: 2025Q3

REPORT INFORMATION
  Report Type: Spontaneous
  Country: EU (occurrence: EU)
  Receive Date: 20250804
  Receipt Date: 20250811
  Transmission Date: 20251021
  Serious: No
  Sender: BOEHRINGER INGELHEIM
  Company Number: EU-BoehringerIngelheim-2025-BI-086972

PATIENT
  Age: 92 Year
  Sex: Female
  Weight: 55 kg

DRUGS (1)
  1. JARDIANCE [Suspect]
     Active Substance: EMPAGLIFLOZIN
     Indication: Product used for unknown indication

REACTIONS (3)
  - Aphasia [Unknown]
  - Apathy [Unknown]
  - Speech disorder [Unknown]

NARRATIVE: CASE EVENT DATE: 20250802
